FAERS Safety Report 8500533-2 (Version None)
Quarter: 2012Q3

REPORT INFORMATION
  Report Type: 
  Country: None (occurrence: None)
  Receive Date: 20120710
  Receipt Date: 20120703
  Transmission Date: 20120928
  Serious: Yes (Disabling)
  Sender: FDA-Public Use
  Company Number: JP-ABBOTT-09P-087-0614570-00

PATIENT
  Age: 59 Year
  Sex: Male

DRUGS (10)
  1. KALETRA [Suspect]
     Route: 048
     Dates: start: 20080729
  2. LAMIVUDINE [Suspect]
     Indication: HIV INFECTION
     Route: 048
     Dates: start: 20080718, end: 20080727
  3. ABACAVIR [Suspect]
     Indication: HIV INFECTION
     Route: 048
     Dates: start: 20080718, end: 20080727
  4. TENOFOVIR DISOPROXIL FUMARATE [Concomitant]
     Indication: HIV INFECTION
     Route: 048
     Dates: start: 20080729
  5. KALETRA [Suspect]
     Indication: HIV INFECTION
     Route: 048
     Dates: start: 20080718, end: 20080727
  6. METOCLOPRAMIDE [Concomitant]
     Indication: PROPHYLAXIS OF NAUSEA AND VOMITING
     Dates: start: 20080718, end: 20080723
  7. SULFAMETHOXAZOLE AND TRIMETHOPRIM [Concomitant]
     Indication: ANTIFUNGAL PROPHYLAXIS
     Route: 048
     Dates: start: 20080704, end: 20090203
  8. LAMIVUDINE [Suspect]
     Dates: start: 20080729
  9. ABACAVIR [Suspect]
     Dates: start: 20080729
  10. LOPERAMIDE HCL [Concomitant]
     Indication: DIARRHOEA
     Dates: start: 20080718, end: 20080723

REACTIONS (6)
  - BLOOD TRIGLYCERIDES INCREASED [None]
  - HYPERSENSITIVITY [None]
  - RASH GENERALISED [None]
  - OROPHARYNGEAL PAIN [None]
  - LIP SWELLING [None]
  - STOMATITIS [None]
